FAERS Safety Report 15066335 (Version 1)
Quarter: 2018Q2

REPORT INFORMATION
  Report Type: Report from Study
  Country: US (occurrence: US)
  Receive Date: 20180626
  Receipt Date: 20180626
  Transmission Date: 20180711
  Serious: Yes (Hospitalization, Other)
  Sender: FDA-Public Use
  Company Number: US-MALLINCKRODT-T201801728

PATIENT
  Age: 59 Year
  Sex: Female

DRUGS (2)
  1. REPOSITORY CORTICOTROPIN INJECTION [Suspect]
     Active Substance: CORTICOTROPIN
     Indication: NEPHROTIC SYNDROME
     Dosage: 80 UNITS / 1 ML 2 TIMES PER WEEK MONDAY, THURSDAY
     Route: 058
     Dates: start: 2018
  2. REPOSITORY CORTICOTROPIN INJECTION [Suspect]
     Active Substance: CORTICOTROPIN
     Indication: PROTEINURIA
     Dosage: 40 UNITS / .5 ML, 2 TIMES PER WEEK  MONDAY, THURSDAY
     Route: 058
     Dates: start: 20180320, end: 2018

REACTIONS (9)
  - Dehydration [Unknown]
  - Drug dose omission [Unknown]
  - Weight increased [Unknown]
  - Oral mucosal blistering [Not Recovered/Not Resolved]
  - Hyperglycaemia [Unknown]
  - Oedema peripheral [Unknown]
  - Candida infection [Recovering/Resolving]
  - Gait disturbance [Unknown]
  - Injection site pruritus [Unknown]

NARRATIVE: CASE EVENT DATE: 201805
